FAERS Safety Report 14900106 (Version 1)
Quarter: 2018Q2

REPORT INFORMATION
  Report Type: Spontaneous
  Country: FR (occurrence: FR)
  Receive Date: 20180516
  Receipt Date: 20180516
  Transmission Date: 20180711
  Serious: Yes (Hospitalization, Other)
  Sender: FDA-Public Use
  Company Number: FR-MERCK KGAA-2047881

PATIENT
  Age: 77 Year
  Sex: Female

DRUGS (1)
  1. NOVOTHYROX [Suspect]
     Active Substance: LEVOTHYROXINE SODIUM
     Indication: POST PROCEDURAL HYPOTHYROIDISM
     Dates: start: 20170627

REACTIONS (21)
  - Gait disturbance [Recovered/Resolved]
  - Myalgia [Recovered/Resolved]
  - Fatigue [Recovered/Resolved]
  - Balance disorder [Recovered/Resolved]
  - Asthenia [Recovered/Resolved]
  - Headache [Recovered/Resolved]
  - Drug interaction [Recovered/Resolved]
  - Dizziness [Recovered/Resolved]
  - Impaired driving ability [Recovered/Resolved]
  - Fall [Recovered/Resolved]
  - Social avoidant behaviour [Recovered/Resolved]
  - Arthralgia [Recovered/Resolved]
  - Head injury [Recovered/Resolved]
  - Loss of personal independence in daily activities [Recovered/Resolved]
  - Loss of consciousness [Recovered/Resolved]
  - Malaise [Recovered/Resolved]
  - Alopecia [Recovered/Resolved]
  - Personal relationship issue [Recovered/Resolved]
  - Epilepsy [Recovered/Resolved]
  - Insomnia [Recovered/Resolved]
  - Self esteem decreased [Recovered/Resolved]

NARRATIVE: CASE EVENT DATE: 2017
